FAERS Safety Report 12841414 (Version 1)
Quarter: 2016Q4

REPORT INFORMATION
  Report Type: Spontaneous
  Country: JP (occurrence: JP)
  Receive Date: 20161012
  Receipt Date: 20161012
  Transmission Date: 20170207
  Serious: Yes (Other)
  Sender: FDA-Public Use
  Company Number: JP-PFIZER INC-2016465735

PATIENT
  Age: 6 Decade
  Sex: Male

DRUGS (5)
  1. CLOTIAZEPAM [Suspect]
     Active Substance: CLOTIAZEPAM
     Route: 048
  2. FENTANYL CITRATE. [Suspect]
     Active Substance: FENTANYL CITRATE
     Dosage: 1 MG, DAILY
     Route: 062
  3. TRIAZOLAM. [Suspect]
     Active Substance: TRIAZOLAM
     Route: 048
  4. TRAMADOL HYDROCHLORIDE AND ACETAMINOPHEN [Concomitant]
     Active Substance: ACETAMINOPHEN\TRAMADOL HYDROCHLORIDE
  5. PREGABALIN. [Concomitant]
     Active Substance: PREGABALIN

REACTIONS (2)
  - Road traffic accident [Unknown]
  - Loss of consciousness [Unknown]
